FAERS Safety Report 5702226-3 (Version None)
Quarter: 2008Q2

REPORT INFORMATION
  Report Type: 
  Country: None (occurrence: None)
  Receive Date: 20080411
  Receipt Date: 20080229
  Transmission Date: 20081010
  Serious: No
  Sender: FDA-Public Use
  Company Number: US-ABBOTT-08P-163-0440776-00

PATIENT

DRUGS (2)
  1. DEPAKOTE [Suspect]
     Indication: DRUG USE FOR UNKNOWN INDICATION
     Dosage: DEPAKOTE
  2. DEPAKOTE [Suspect]
     Dosage: VALPROIC ACID SYRUP
     Route: 048

REACTIONS (1)
  - AMMONIA INCREASED [None]
